FAERS Safety Report 6366708-6 (Version None)
Quarter: 2009Q3

REPORT INFORMATION
  Report Type: 
  Country: None (occurrence: None)
  Receive Date: 20090921
  Receipt Date: 20090915
  Transmission Date: 20100115
  Serious: Yes (Hospitalization)
  Sender: FDA-Public Use
  Company Number: SE-BAYER-200932078GPV

PATIENT
  Age: 66 Year
  Sex: Male

DRUGS (15)
  1. NEXAVAR [Suspect]
     Indication: HEPATIC NEOPLASM MALIGNANT
     Dosage: TOTAL DAILY DOSE: 800 MG
     Route: 048
     Dates: start: 20090901
  2. OMEPRAZOL [Concomitant]
  3. METFORMIN HCL [Concomitant]
  4. TROMBYL [Concomitant]
  5. FOLACIN [Concomitant]
  6. ENALAPRIL MALEATE [Concomitant]
  7. SIMVASTATIN [Concomitant]
  8. HIPREX [Concomitant]
  9. AKINETON [Concomitant]
  10. RISPERDAL [Concomitant]
  11. NITRAZEPAM [Concomitant]
  12. FLUNITRAZEPAM [Concomitant]
  13. CITALOPRAM HYDROBROMIDE [Concomitant]
  14. ORIFRIL LONG [Concomitant]
  15. MORFIN [Concomitant]

REACTIONS (3)
  - PHARYNGEAL OEDEMA [None]
  - SWELLING FACE [None]
  - SWOLLEN TONGUE [None]
